FAERS Safety Report 14240041 (Version 1)
Quarter: 2017Q4

REPORT INFORMATION
  Report Type: Spontaneous
  Country: US (occurrence: US)
  Receive Date: 20171128
  Receipt Date: 20171128
  Transmission Date: 20180321
  Serious: Yes (Hospitalization)
  Sender: FDA-Public Use
  Company Number: None

PATIENT
  Sex: Female
  Weight: 2.7 kg

DRUGS (1)
  1. PHYTONADIONE. [Suspect]
     Active Substance: PHYTONADIONE
     Indication: PRODUCT USED FOR UNKNOWN INDICATION
     Dosage: ?          QUANTITY:1 INJECTION(S);OTHER FREQUENCY:1 TIME;OTHER ROUTE:INTRAMSUCLAR?
     Route: 030

REACTIONS (5)
  - General physical health deterioration [None]
  - Blood bilirubin increased [None]
  - Tooth extraction [None]
  - Incorrect dose administered [None]
  - Neonatal respiratory distress syndrome [None]

NARRATIVE: CASE EVENT DATE: 20110208
